FAERS Safety Report 5622092-4 (Version None)
Quarter: 2008Q1

REPORT INFORMATION
  Report Type: 
  Country: None (occurrence: None)
  Receive Date: 20080206
  Receipt Date: 20080125
  Transmission Date: 20080703
  Serious: Yes (Other)
  Sender: FDA-Public Use
  Company Number: 2008AP000278

PATIENT
  Age: 30 Year
  Sex: Female

DRUGS (7)
  1. PAROXETINE HCL [Suspect]
     Dosage: PO, PO, 40 MG; PO, 20 MG; PO
     Route: 048
     Dates: start: 19950428
  2. PAROXETINE HCL [Suspect]
     Dosage: PO, PO, 40 MG; PO, 20 MG; PO
     Route: 048
     Dates: start: 19950428
  3. PAROXETINE HCL [Suspect]
     Dosage: PO, PO, 40 MG; PO, 20 MG; PO
     Route: 048
     Dates: start: 20010901
  4. PAROXETINE HCL [Suspect]
     Dosage: PO, PO, 40 MG; PO, 20 MG; PO
     Route: 048
     Dates: start: 20040824
  5. DIAZEPAM [Concomitant]
  6. FLUOXETINE HCL [Concomitant]
  7. TRAZODONE HCL [Concomitant]

REACTIONS (22)
  - ALCOHOL USE [None]
  - ANOREXIA [None]
  - ANXIETY [None]
  - APPETITE DISORDER [None]
  - DIARRHOEA [None]
  - DIZZINESS [None]
  - DRUG HYPERSENSITIVITY [None]
  - DRUG WITHDRAWAL SYNDROME [None]
  - HEADACHE [None]
  - IMPAIRED WORK ABILITY [None]
  - INJURY [None]
  - INSOMNIA [None]
  - MALAISE [None]
  - NAUSEA [None]
  - NIGHT SWEATS [None]
  - PANIC ATTACK [None]
  - REFUSAL OF TREATMENT BY PATIENT [None]
  - SLEEP DISORDER [None]
  - STOMACH DISCOMFORT [None]
  - STRESS [None]
  - SUICIDAL IDEATION [None]
  - TEARFULNESS [None]
